FAERS Safety Report 4745872-6 (Version None)
Quarter: 2005Q3

REPORT INFORMATION
  Report Type: 
  Country: None (occurrence: None)
  Receive Date: 20050816
  Receipt Date: 20050804
  Transmission Date: 20060218
  Serious: Yes (Hospitalization)
  Sender: FDA-Public Use
  Company Number: FR-BRISTOL-MYERS SQUIBB COMPANY-13064902

PATIENT
  Age: 72 Year
  Sex: Male
  Weight: 140 kg

DRUGS (10)
  1. ELISOR TABS [Suspect]
     Route: 048
     Dates: end: 20050602
  2. ALLOPURINOL [Suspect]
     Dates: start: 20050530, end: 20050604
  3. ROCEPHIN [Suspect]
     Indication: PYREXIA
     Route: 030
     Dates: start: 20050527, end: 20050602
  4. LAROXYL [Suspect]
     Dates: end: 20050602
  5. NEURONTIN [Suspect]
     Dates: end: 20050602
  6. RISPERDAL [Suspect]
  7. LASIX [Concomitant]
  8. ZESTRIL [Concomitant]
  9. CORDARONE [Concomitant]
  10. SECTRAL [Concomitant]

REACTIONS (3)
  - ACUTE GENERALISED EXANTHEMATOUS PUSTULOSIS [None]
  - ENTEROBACTER INFECTION [None]
  - RASH MACULO-PAPULAR [None]
